FAERS Safety Report 4316158-9 (Version None)
Quarter: 2004Q1

REPORT INFORMATION
  Report Type: 
  Country: None (occurrence: None)
  Receive Date: 20040312
  Receipt Date: 20040305
  Transmission Date: 20041129
  Serious: Yes (Life-Threatening)
  Sender: FDA-Public Use
  Company Number: PHBS2004JP03128

PATIENT
  Age: 55 Year
  Sex: Male

DRUGS (1)
  1. TEGRETOL [Suspect]
     Indication: EPILEPSY
     Dosage: 600 MG/DAY
     Route: 048
     Dates: start: 20000101, end: 20040305

REACTIONS (4)
  - DYSPNOEA EXACERBATED [None]
  - PCO2 DECREASED [None]
  - PO2 DECREASED [None]
  - PULMONARY EMBOLISM [None]
